FAERS Safety Report 19653886 (Version 2)
Quarter: 2021Q4

REPORT INFORMATION
  Report Type: Report from Study
  Country: FR (occurrence: FR)
  Receive Date: 20210803
  Receipt Date: 20211209
  Transmission Date: 20220303
  Serious: Yes (Life-Threatening, Hospitalization, Other)
  Sender: FDA-Public Use
  Company Number: FR-ALLERGAN-2127238US

PATIENT
  Sex: Female
  Weight: 77 kg

DRUGS (1)
  1. AVIBACTAM SODIUM\CEFTAZIDIME [Suspect]
     Active Substance: AVIBACTAM SODIUM\CEFTAZIDIME
     Indication: Product used for unknown indication
     Dosage: 1 G, BID
     Route: 065
     Dates: start: 20190606

REACTIONS (21)
  - Cardiac arrest [Unknown]
  - Septic shock [Not Recovered/Not Resolved]
  - Metabolic acidosis [Unknown]
  - Multiple organ dysfunction syndrome [Unknown]
  - Oxygen saturation decreased [Unknown]
  - Bilirubin conjugated increased [Unknown]
  - Rectal haemorrhage [Unknown]
  - Hyperbilirubinaemia [Unknown]
  - Pain [Unknown]
  - Dyspnoea [Unknown]
  - Lower respiratory tract congestion [Unknown]
  - Oedema [Unknown]
  - Bradycardia [Unknown]
  - Pain [Unknown]
  - Pneumonia aspiration [Unknown]
  - Acute kidney injury [Unknown]
  - Acute kidney injury [Unknown]
  - Nausea [Unknown]
  - Blood bilirubin increased [Recovered/Resolved]
  - Bilirubin conjugated increased [Recovered/Resolved]
  - Overdose [Unknown]

NARRATIVE: CASE EVENT DATE: 20190607
